FAERS Safety Report 12706510 (Version 1)
Quarter: 2016Q3

REPORT INFORMATION
  Report Type: Spontaneous
  Country: US (occurrence: US)
  Receive Date: 20160901
  Receipt Date: 20160901
  Transmission Date: 20161109
  Serious: No
  Sender: FDA-Public Use
  Company Number: US-PFIZER INC-2016409147

PATIENT
  Age: 72 Year
  Sex: Male

DRUGS (1)
  1. ADVIL [Suspect]
     Active Substance: IBUPROFEN
     Indication: PAIN
     Dosage: THREE TABLETS BY MOUTH
     Route: 048
     Dates: start: 20160829, end: 20160829

REACTIONS (5)
  - Poor quality drug administered [Unknown]
  - Dyspnoea [Recovered/Resolved]
  - Product physical issue [Unknown]
  - Burning sensation [Recovering/Resolving]
  - Headache [Not Recovered/Not Resolved]

NARRATIVE: CASE EVENT DATE: 20160829
